FAERS Safety Report 7412527-9 (Version None)
Quarter: 2011Q2

REPORT INFORMATION
  Report Type: 
  Country: None (occurrence: None)
  Receive Date: 20110413
  Receipt Date: 20110404
  Transmission Date: 20111010
  Serious: Yes (Hospitalization, Other)
  Sender: FDA-Public Use
  Company Number: US-ASTRAZENECA-2011SE04567

PATIENT
  Age: 352 Month
  Sex: Female
  Weight: 65.8 kg

DRUGS (9)
  1. TRAZODONE HCL [Concomitant]
     Dosage: HS
     Route: 048
  2. SEROQUEL [Suspect]
     Indication: ANXIETY
     Route: 048
     Dates: end: 20110329
  3. EFFEXOR [Concomitant]
     Indication: DEPRESSION
     Route: 048
  4. XANAX [Concomitant]
     Indication: ANXIETY
     Dosage: 2 MG TID PRN
     Route: 048
  5. SEROQUEL [Suspect]
     Indication: AFFECTIVE DISORDER
     Route: 048
     Dates: end: 20110329
  6. LYRICA [Concomitant]
     Indication: HERPES ZOSTER
     Route: 048
  7. SEROQUEL [Suspect]
     Indication: ABNORMAL BEHAVIOUR
     Route: 048
     Dates: end: 20110329
  8. PAXIL [Concomitant]
     Indication: DEPRESSION
     Route: 048
  9. SEROQUEL [Suspect]
     Indication: INSOMNIA
     Route: 048
     Dates: end: 20110329

REACTIONS (9)
  - IRRITABILITY [None]
  - DRUG DOSE OMISSION [None]
  - AFFECTIVE DISORDER [None]
  - HYSTERECTOMY [None]
  - VAGINAL HAEMORRHAGE [None]
  - INCORRECT DOSE ADMINISTERED [None]
  - MALAISE [None]
  - INSOMNIA [None]
  - SOMNOLENCE [None]
